FAERS Safety Report 24462721 (Version 1)
Quarter: 2024Q4

REPORT INFORMATION
  Report Type: Spontaneous
  Country: FR (occurrence: FR)
  Receive Date: 20241018
  Receipt Date: 20241018
  Transmission Date: 20250114
  Serious: Yes (Other)
  Sender: NOVARTIS
  Company Number: None

PATIENT
  Age: 24 Year
  Sex: Male
  Weight: 40 kg

DRUGS (5)
  1. TEGRETOL [Suspect]
     Active Substance: CARBAMAZEPINE
     Indication: Epilepsy
     Dosage: 600 MG, ONCE/SINGLE
     Route: 048
     Dates: start: 20200811, end: 20200811
  2. VALPROATE SODIUM [Suspect]
     Active Substance: VALPROATE SODIUM
     Indication: Epilepsy
     Dosage: 1250 MG, ONCE/SINGLE (COMPRIM? PELLICUL? S?CABLE ? LIB?RATION PROLONG?E)
     Route: 048
     Dates: start: 20200811, end: 20200811
  3. ESOMEPRAZOLE [Suspect]
     Active Substance: ESOMEPRAZOLE
     Indication: Product used for unknown indication
     Dosage: 20 MG, ONCE/SINGLE
     Route: 048
     Dates: start: 20200811, end: 20200811
  4. RISPERDAL [Suspect]
     Active Substance: RISPERIDONE
     Indication: Product used for unknown indication
     Dosage: 4 MG, ONCE/SINGLE
     Route: 048
     Dates: start: 20200811, end: 20200811
  5. VALIUM [Concomitant]
     Active Substance: DIAZEPAM
     Indication: Product used for unknown indication
     Dosage: 19 DRP, QD (DROP (1/12 MILLILITRE))
     Route: 048

REACTIONS (3)
  - Seizure [Recovered/Resolved]
  - Somnolence [Recovered/Resolved]
  - Incorrect dose administered [Recovered/Resolved]

NARRATIVE: CASE EVENT DATE: 20200811
